FAERS Safety Report 24769367 (Version 1)
Quarter: 2024Q4

REPORT INFORMATION
  Report Type: Spontaneous
  Country: CN (occurrence: CN)
  Receive Date: 20241224
  Receipt Date: 20241224
  Transmission Date: 20250115
  Serious: Yes (Hospitalization)
  Sender: ABBVIE
  Company Number: CN-PFIZER INC-PV202400165156

PATIENT
  Age: 50 Year
  Sex: Female
  Weight: 50 kg

DRUGS (2)
  1. AVIBACTAM SODIUM\CEFTAZIDIME [Suspect]
     Active Substance: AVIBACTAM SODIUM\CEFTAZIDIME
     Indication: Pneumonia mycoplasmal
     Dosage: TIME INTERVAL: 0.33333333 DAYS: 2.5 G, 3X/DAY
     Route: 041
     Dates: start: 20241203, end: 20241209
  2. SODIUM CHLORIDE [Concomitant]
     Active Substance: SODIUM CHLORIDE
     Indication: Pleural effusion
     Dosage: TIME INTERVAL: 0.33333333 DAYS: 100 ML, 3X/DAY
     Route: 041
     Dates: start: 20241203, end: 20241209

REACTIONS (1)
  - Platelet count increased [Recovering/Resolving]

NARRATIVE: CASE EVENT DATE: 20241209
